FAERS Safety Report 4344176-3 (Version None)
Quarter: 2004Q2

REPORT INFORMATION
  Report Type: 
  Country: None (occurrence: None)
  Receive Date: 20040422
  Receipt Date: 20040209
  Transmission Date: 20050107
  Serious: Yes (Other)
  Sender: FDA-Public Use
  Company Number: PHBS2004NL01962

PATIENT
  Age: 72 Year
  Sex: Male

DRUGS (6)
  1. CLOZAPINE [Suspect]
     Indication: MEDICATION ERROR
     Dosage: 100 MG/D
     Route: 065
  2. PIMOZIDE [Concomitant]
     Dosage: 6 MG/D
     Route: 065
  3. LITHIUM CARBONATE [Concomitant]
     Dosage: 400 MG/D
     Route: 065
  4. ACETAMINOPHEN [Concomitant]
     Dosage: 500 MG, TID
     Route: 065
  5. TEMAZEPAM [Concomitant]
     Dosage: 10 MG/D
     Route: 065
  6. LORAZEPAM [Suspect]
     Dosage: 1 MG/D
     Route: 065

REACTIONS (5)
  - ACCIDENTAL EXPOSURE [None]
  - COMA [None]
  - DRUG INEFFECTIVE [None]
  - MEDICATION ERROR [None]
  - POISONING [None]
